FAERS Safety Report 9382220 (Version 1)
Quarter: 2013Q3

REPORT INFORMATION
  Report Type: Spontaneous
  Country: CH (occurrence: CH)
  Receive Date: 20130703
  Receipt Date: 20130703
  Transmission Date: 20140515
  Serious: Yes (Other)
  Sender: FDA-Public Use
  Company Number: CH-ASTRAZENECA-2013SE48996

PATIENT
  Age: 62 Year
  Sex: Male
  Weight: 97 kg

DRUGS (11)
  1. PEMZEK PLUS [Suspect]
     Indication: ESSENTIAL HYPERTENSION
     Route: 048
     Dates: end: 2013
  2. AMLODIPIN [Suspect]
     Indication: ESSENTIAL HYPERTENSION
     Route: 048
     Dates: end: 2013
  3. AVASTIN [Suspect]
     Indication: OPTIC NERVE DISORDER
     Route: 047
     Dates: start: 20120618
  4. AVASTIN [Suspect]
     Indication: OPTIC ISCHAEMIC NEUROPATHY
     Route: 047
     Dates: start: 20120618
  5. AVASTIN [Suspect]
     Indication: MACULAR OEDEMA
     Route: 047
     Dates: start: 20120618
  6. LUCENTIS [Suspect]
     Indication: OPTIC NERVE DISORDER
     Route: 047
     Dates: start: 20121211, end: 20121211
  7. LUCENTIS [Suspect]
     Indication: OPTIC NERVE DISORDER
     Route: 047
     Dates: start: 201301, end: 201301
  8. METFIN [Concomitant]
     Indication: TYPE 2 DIABETES MELLITUS
     Route: 048
     Dates: end: 2013
  9. DIAMICRON [Concomitant]
     Indication: TYPE 2 DIABETES MELLITUS
     Route: 048
     Dates: end: 2013
  10. METO ZEROK [Concomitant]
     Indication: ESSENTIAL HYPERTENSION
     Route: 048
     Dates: end: 2013
  11. ASS CARDIO SPIRIG [Concomitant]
     Route: 048
     Dates: end: 2013

REACTIONS (1)
  - Tubulointerstitial nephritis [Not Recovered/Not Resolved]
